FAERS Safety Report 13680444 (Version 2)
Quarter: 2017Q2

REPORT INFORMATION
  Report Type: Spontaneous
  Country: GB (occurrence: GB)
  Receive Date: 20170623
  Receipt Date: 20170627
  Transmission Date: 20170830
  Serious: Yes (Other)
  Sender: FDA-Public Use
  Company Number: GB-AMGEN-GBRSP2017066277

PATIENT
  Age: 54 Year
  Sex: Female

DRUGS (1)
  1. ENBREL [Suspect]
     Active Substance: ETANERCEPT
     Indication: PRODUCT USED FOR UNKNOWN INDICATION
     Dosage: 50 MG, UNK
     Route: 058
     Dates: start: 20170425

REACTIONS (9)
  - Tooth abscess [Unknown]
  - Injection site pain [Unknown]
  - Pruritus [Recovered/Resolved]
  - Sinusitis [Unknown]
  - Infection [Unknown]
  - Feeling hot [Recovered/Resolved]
  - Injection site bruising [Unknown]
  - Headache [Unknown]
  - Urticaria [Recovered/Resolved]

NARRATIVE: CASE EVENT DATE: 20170428
